FAERS Safety Report 9179710 (Version 1)
Quarter: 2012Q4

REPORT INFORMATION
  Report Type: 
  Country: US (occurrence: US)
  Receive Date: 20121029
  Receipt Date: 20121029
  Transmission Date: 20130627
  Serious: No
  Sender: FDA-Public Use
  Company Number: US-B.I. PHARMACEUTICALS,INC./RIDGEFIELD-2012-BP-26494BP

PATIENT
  Age: 65 None
  Sex: Male

DRUGS (11)
  1. SPIRIVA [Suspect]
     Indication: CHRONIC OBSTRUCTIVE PULMONARY DISEASE
     Dosage: 18 mcg
     Route: 055
     Dates: start: 201108
  2. CARVEDILOL [Concomitant]
     Indication: CARDIAC DISORDER
     Dosage: 50 mg
     Route: 048
     Dates: start: 201110
  3. LISINOPRIL [Concomitant]
     Indication: HYPERTENSION
     Dosage: 20 mg
     Route: 048
     Dates: start: 2011
  4. CLONIDINE [Concomitant]
     Route: 048
     Dates: start: 2005
  5. DIPHENHYDRAMINE [Concomitant]
     Indication: SEASONAL ALLERGY
     Route: 048
     Dates: start: 2005
  6. PROAIR [Concomitant]
     Indication: CHRONIC OBSTRUCTIVE PULMONARY DISEASE
     Route: 055
     Dates: start: 2002
  7. LEXAPRO [Concomitant]
     Indication: MOOD ALTERED
     Dosage: 20 mg
     Route: 048
  8. LITHIUM CARBONATE [Concomitant]
     Indication: DEPRESSED MOOD
     Dosage: 300 mg
     Route: 048
     Dates: start: 2004
  9. NORTRIPTYLLINE [Concomitant]
     Dosage: 20 mg
     Route: 048
     Dates: start: 2004
  10. TYLENOL ARTHRITIS FORMULA [Concomitant]
     Indication: ARTHRITIS
     Route: 048
  11. LIPITOR [Concomitant]
     Indication: BLOOD CHOLESTEROL INCREASED
     Dosage: 20 mg
     Route: 048
     Dates: start: 2007

REACTIONS (3)
  - Cough [Recovered/Resolved]
  - Dyspnoea [Recovered/Resolved]
  - Product quality issue [Recovered/Resolved]
